FAERS Safety Report 16165855 (Version 4)
Quarter: 2020Q3

REPORT INFORMATION
  Report Type: Report from Study
  Country: US (occurrence: US)
  Receive Date: 20190406
  Receipt Date: 20191106
  Transmission Date: 20201105
  Serious: Yes (Hospitalization)
  Sender: FDA-Public Use
  Company Number: US-ROCHE-2292054

PATIENT
  Age: 42 Year
  Sex: Female
  Weight: 85.3 kg

DRUGS (11)
  1. RO7009789 (CD40 AGONIST) [Suspect]
     Active Substance: SELICRELUMAB
     Indication: PANCREATIC CARCINOMA METASTATIC
     Dosage: ON DAY 1 OF CYCLES 1?4 AND EVERY THIRD CYCLE THEREAFTER (I.E. CYCLES 7, 10, 13 ETC.) OF EACH 28?DAY
     Route: 058
     Dates: start: 20190322
  2. MIRTAZAPINE. [Concomitant]
     Active Substance: MIRTAZAPINE
     Indication: INSOMNIA
     Route: 065
     Dates: start: 20190313
  3. AMOXICILLIN AND CLAVULANATE POTASSIUM [Concomitant]
     Active Substance: AMOXICILLIN\CLAVULANATE POTASSIUM
     Indication: ANTIBIOTIC PROPHYLAXIS
     Route: 065
     Dates: start: 20190330, end: 20190331
  4. NAB?PACLITAXEL [Suspect]
     Active Substance: PACLITAXEL
     Indication: PANCREATIC CARCINOMA METASTATIC
     Dosage: DAYS 1, 8, AND 15 OF EACH 28 DAY CYCLE?DATE OF MOST RECENT DOSE OF STUDY DRUG PACLITAXEL PRIOR TO AE
     Route: 042
     Dates: start: 20190322
  5. PIPERACILLIN AND TAZOBACTAM [Concomitant]
     Active Substance: PIPERACILLIN SODIUM\TAZOBACTAM SODIUM
     Indication: ANTIBIOTIC PROPHYLAXIS
     Route: 065
     Dates: start: 20190325, end: 20190325
  6. GEMCITABINE. [Suspect]
     Active Substance: GEMCITABINE
     Indication: PANCREATIC CARCINOMA METASTATIC
     Dosage: ON DAYS 1, 8, AND 15 OF EACH 28 DAY CYCLE?DOSE OF LAST STUDY DRUG GEMCITABINE ADMINISTERED PRIOR TO
     Route: 042
     Dates: start: 20190322
  7. OXYCODONE [Concomitant]
     Active Substance: OXYCODONE
     Indication: ABDOMINAL PAIN
     Route: 065
     Dates: start: 20190313
  8. PANTOPRAZOLE [Concomitant]
     Active Substance: PANTOPRAZOLE
     Indication: PROPHYLAXIS
     Route: 065
     Dates: start: 20190402
  9. POLYETHYLENE GLYCOL 3350. [Concomitant]
     Active Substance: POLYETHYLENE GLYCOL 3350
     Indication: CONSTIPATION
     Route: 065
     Dates: start: 20190324
  10. FENTANYL. [Concomitant]
     Active Substance: FENTANYL
     Indication: ABDOMINAL PAIN
     Route: 065
     Dates: start: 20190313
  11. ATEZOLIZUMAB. [Suspect]
     Active Substance: ATEZOLIZUMAB
     Indication: PANCREATIC CARCINOMA METASTATIC
     Dosage: DAYS 1 AND 15 OF EACH 28 DAY CYCLE?DATE OF MOST RECENT DOSE OF STUDY DRUG ATEZOLIZUMAB PRIOR TO AE
     Route: 041
     Dates: start: 20190322

REACTIONS (1)
  - Dehydration [Recovered/Resolved]

NARRATIVE: CASE EVENT DATE: 20190325
